FAERS Safety Report 23300252 (Version 1)
Quarter: 2023Q4

REPORT INFORMATION
  Report Type: Spontaneous
  Country: DE (occurrence: DE)
  Receive Date: 20231215
  Receipt Date: 20231215
  Transmission Date: 20240109
  Serious: Yes (Hospitalization)
  Sender: FDA-Public Use
  Company Number: None

PATIENT
  Age: 53 Year
  Sex: Female
  Weight: 70 kg

DRUGS (10)
  1. CARBOPLATIN [Suspect]
     Active Substance: CARBOPLATIN
     Indication: Non-small cell lung cancer
     Dosage: 366 MG (AS FIRST LINE THERAPY)
     Route: 065
     Dates: start: 20230202, end: 20230420
  2. PEMETREXED [Suspect]
     Active Substance: PEMETREXED
     Indication: Non-small cell lung cancer
     Dosage: 419 MG, ALSO REPORTED 629 MG, AS FIRST LINE THERAPY
     Route: 065
     Dates: start: 20230202, end: 20230420
  3. PEMBROLIZUMAB [Suspect]
     Active Substance: PEMBROLIZUMAB
     Indication: Non-small cell lung cancer
     Dosage: 200 MG (AS FIRST LINE THERAPY)
     Route: 065
     Dates: start: 20230202, end: 20230420
  4. AKYNZEO [Concomitant]
     Indication: Product used for unknown indication
     Dosage: 300 MG, QD (AS NEEDED)
     Route: 048
     Dates: start: 20230202
  5. AMPHOTERICIN B [Concomitant]
     Active Substance: AMPHOTERICIN B
     Indication: Product used for unknown indication
     Dosage: UNK UNK, QD (100 MG (EXTERNAL) PRN (AS NEEDED))
     Route: 061
     Dates: start: 20230126
  6. DEXAMETHASONE [Concomitant]
     Active Substance: DEXAMETHASONE
     Indication: Product used for unknown indication
     Dosage: 2 MG, QD
     Route: 048
     Dates: start: 20230126
  7. HUMAN RED BLOOD CELL [Concomitant]
     Active Substance: HUMAN RED BLOOD CELL
     Indication: Product used for unknown indication
     Dosage: 280 ML, QD
     Route: 042
     Dates: start: 20230411, end: 20230411
  8. FOLIC ACID [Concomitant]
     Active Substance: FOLIC ACID
     Indication: Product used for unknown indication
     Dosage: 400 UG, QD
     Route: 048
     Dates: start: 20230111
  9. MCP [Concomitant]
     Active Substance: METOCLOPRAMIDE HYDROCHLORIDE
     Indication: Product used for unknown indication
     Dosage: 10 MG, QD (AS NEEDED)
     Route: 048
     Dates: start: 20230406
  10. METOCLOPRAMIDE [Concomitant]
     Active Substance: METOCLOPRAMIDE
     Indication: Product used for unknown indication
     Dosage: 10 MG AS NEEDED
     Route: 048
     Dates: start: 20230406

REACTIONS (1)
  - Sepsis [Recovered/Resolved]

NARRATIVE: CASE EVENT DATE: 20230422
